FAERS Safety Report 9656757 (Version 1)
Quarter: 2013Q4

REPORT INFORMATION
  Report Type: Spontaneous
  Country: FR (occurrence: None)
  Receive Date: 20131016
  Receipt Date: 20131016
  Transmission Date: 20140711
  Serious: Yes (Hospitalization)
  Sender: FDA-Public Use
  Company Number: 2013038327

PATIENT
  Age: 40 Year
  Sex: Female

DRUGS (1)
  1. RHOPHYLAC [Suspect]
     Dosage: 300UG, 300 UG/2ML; 1 SINGLE DOSE, 200UG
     Route: 042
     Dates: start: 20130629, end: 20130629

REACTIONS (5)
  - Urticaria [None]
  - Oedema peripheral [None]
  - Pruritus [None]
  - Dermatitis [None]
  - Erythema [None]
